FAERS Safety Report 8198802-1 (Version None)
Quarter: 2012Q1

REPORT INFORMATION
  Report Type: 
  Country: None (occurrence: None)
  Receive Date: 20120309
  Receipt Date: 20120213
  Transmission Date: 20120608
  Serious: No
  Sender: FDA-Public Use
  Company Number: US-AMGEN-USASP2011041167

PATIENT
  Age: 53 Year
  Sex: Female

DRUGS (3)
  1. PROLIA [Suspect]
     Dosage: 60 MG, Q6MO
     Dates: start: 20110601
  2. PROLIA [Suspect]
     Indication: OSTEOPOROSIS POSTMENOPAUSAL
     Dosage: 60 MG, Q6MO
     Dates: start: 20110101
  3. FLUOXETINE HCL [Concomitant]
     Dosage: UNK

REACTIONS (3)
  - ARTHRITIS [None]
  - MUSCULOSKELETAL CHEST PAIN [None]
  - ARTHROPATHY [None]
